FAERS Safety Report 5986639-0 (Version None)
Quarter: 2008Q4

REPORT INFORMATION
  Report Type: 
  Country: None (occurrence: None)
  Receive Date: 20081203
  Receipt Date: 20081118
  Transmission Date: 20090506
  Serious: Yes (Death, Hospitalization)
  Sender: FDA-Public Use
  Company Number: 2008AL011965

PATIENT
  Age: 40 Year
  Sex: Male

DRUGS (4)
  1. RAMIPRIL [Suspect]
     Indication: CHEST PAIN
     Dates: start: 20060101, end: 20060101
  2. LISINOPRIL [Concomitant]
  3. PERINDOPRIL [Concomitant]
  4. APROVEL [Concomitant]

REACTIONS (4)
  - ARTERIOSCLEROSIS [None]
  - ARTERIOSPASM CORONARY [None]
  - ARTERITIS CORONARY [None]
  - DRUG LEVEL DECREASED [None]
